FAERS Safety Report 5743776-3 (Version None)
Quarter: 2008Q2

REPORT INFORMATION
  Report Type: 
  Country: None (occurrence: None)
  Receive Date: 20080520
  Receipt Date: 20080516
  Transmission Date: 20081010
  Serious: Yes (Death, Life-Threatening, Hospitalization)
  Sender: FDA-Public Use
  Company Number: DE-BAYER-200818265GPV

PATIENT
  Age: 49 Year
  Sex: Female
  Weight: 65 kg

DRUGS (15)
  1. SORAFENIB [Suspect]
     Indication: METASTATIC MALIGNANT MELANOMA
     Route: 048
     Dates: start: 20080430, end: 20080507
  2. PEG-INTRON [Suspect]
     Indication: METASTATIC MALIGNANT MELANOMA
     Route: 058
     Dates: start: 20080430, end: 20080507
  3. MCP [Concomitant]
     Indication: DRUG USE FOR UNKNOWN INDICATION
     Dosage: TOTAL DAILY DOSE: 20 MG
     Route: 065
     Dates: start: 20080509, end: 20080509
  4. VOMEX A [Concomitant]
     Indication: DRUG USE FOR UNKNOWN INDICATION
     Route: 065
     Dates: start: 20080509, end: 20080509
  5. NEXIUM [Concomitant]
     Indication: DRUG USE FOR UNKNOWN INDICATION
     Dosage: TOTAL DAILY DOSE: 80 MG
     Route: 042
     Dates: start: 20080509, end: 20080509
  6. OCTAPLEX [Concomitant]
     Indication: DRUG USE FOR UNKNOWN INDICATION
     Dosage: TOTAL DAILY DOSE: 2000 IU
     Route: 042
     Dates: start: 20080509, end: 20080509
  7. BI53 [Concomitant]
     Indication: DRUG USE FOR UNKNOWN INDICATION
     Route: 065
  8. DISOPRIVAN [Concomitant]
     Indication: DRUG USE FOR UNKNOWN INDICATION
     Route: 065
  9. MANNITOL [Concomitant]
     Indication: DRUG USE FOR UNKNOWN INDICATION
     Dosage: TOTAL DAILY DOSE: 600 ML
     Route: 065
  10. LASIX [Concomitant]
     Indication: DRUG USE FOR UNKNOWN INDICATION
     Route: 065
  11. IRENAT [Concomitant]
     Indication: HYPERTHYROIDISM
     Route: 065
     Dates: start: 20080411, end: 20080421
  12. ACETAMINOPHEN [Concomitant]
     Indication: DRUG USE FOR UNKNOWN INDICATION
     Route: 065
     Dates: start: 20080430, end: 20080501
  13. ACETAMINOPHEN [Concomitant]
     Route: 065
     Dates: start: 20080507
  14. RIOPAN [Concomitant]
     Indication: DRUG USE FOR UNKNOWN INDICATION
     Route: 065
     Dates: start: 20080430
  15. KONAKION [Concomitant]
     Indication: DRUG USE FOR UNKNOWN INDICATION
     Route: 042
     Dates: start: 20080509, end: 20080509

REACTIONS (3)
  - COAGULOPATHY [None]
  - SUBDURAL HAEMORRHAGE [None]
  - THROMBOCYTOPENIA [None]
